FAERS Safety Report 5925515-6 (Version None)
Quarter: 2008Q4

REPORT INFORMATION
  Report Type: 
  Country: None (occurrence: None)
  Receive Date: 20081021
  Receipt Date: 20081015
  Transmission Date: 20090506
  Serious: Yes (Death, Other)
  Sender: FDA-Public Use
  Company Number: PHHY2008JP24946

PATIENT
  Sex: Female

DRUGS (2)
  1. CYCLOSPORINE [Suspect]
     Indication: MYASTHENIA GRAVIS
  2. ADRENAL HORMONE PREPARATION [Concomitant]
     Indication: MYASTHENIA GRAVIS

REACTIONS (6)
  - CEREBRAL INFARCTION [None]
  - CYTOMEGALOVIRUS ENTEROCOLITIS [None]
  - DISSEMINATED INTRAVASCULAR COAGULATION [None]
  - DYSPHAGIA [None]
  - KLEBSIELLA INFECTION [None]
  - STAPHYLOCOCCAL INFECTION [None]
